FAERS Safety Report 21069955 (Version 2)
Quarter: 2022Q3

REPORT INFORMATION
  Report Type: Spontaneous
  Country: US (occurrence: US)
  Receive Date: 20220712
  Receipt Date: 20220712
  Transmission Date: 20221026
  Serious: No
  Sender: FDA-Public Use
  Company Number: US-ASTELLAS-2021US033298

PATIENT
  Sex: Male

DRUGS (5)
  1. MYRBETRIQ [Suspect]
     Active Substance: MIRABEGRON
     Indication: Hypertonic bladder
     Route: 048
     Dates: start: 202106
  2. MYRBETRIQ [Suspect]
     Active Substance: MIRABEGRON
     Indication: Pollakiuria
  3. MYRBETRIQ [Suspect]
     Active Substance: MIRABEGRON
     Indication: Hypertonic bladder
     Route: 048
     Dates: start: 202108
  4. MYRBETRIQ [Suspect]
     Active Substance: MIRABEGRON
     Indication: Pollakiuria
     Dosage: UNK UNK, CUT TABLET IN HALF ONCE DAILY
     Route: 048
  5. OXYBUTYNIN [Suspect]
     Active Substance: OXYBUTYNIN
     Indication: Product used for unknown indication
     Dosage: UNK UNK, UNKNOWN FREQ.
     Route: 065

REACTIONS (3)
  - Blood pressure decreased [Recovered/Resolved]
  - Condition aggravated [Recovered/Resolved]
  - Wrong technique in product usage process [Recovered/Resolved]
